FAERS Safety Report 16497344 (Version 4)
Quarter: 2020Q4

REPORT INFORMATION
  Report Type: Report from Study
  Country: US (occurrence: US)
  Receive Date: 20190628
  Receipt Date: 20201104
  Transmission Date: 20210113
  Serious: No
  Sender: FDA-Public Use
  Company Number: US-IPSEN BIOPHARMACEUTICALS, INC.-2019-02250

PATIENT
  Age: 8 Year
  Sex: Male
  Weight: 21.3 kg

DRUGS (13)
  1. DYSPORT [Suspect]
     Active Substance: ABOBOTULINUMTOXINA
     Indication: MUSCLE SPASTICITY
  2. NEXIUM [Concomitant]
     Active Substance: ESOMEPRAZOLE MAGNESIUM
     Indication: GASTROOESOPHAGEAL REFLUX DISEASE
     Dosage: QD-DAILY
     Dates: start: 201712, end: 20180930
  3. ONFI [Concomitant]
     Active Substance: CLOBAZAM
     Dates: start: 201904
  4. ONFI [Concomitant]
     Active Substance: CLOBAZAM
     Indication: SEIZURE
     Dates: start: 201509, end: 201904
  5. ONFI [Concomitant]
     Active Substance: CLOBAZAM
     Dates: start: 201509, end: 201904
  6. DYSPORT [Suspect]
     Active Substance: ABOBOTULINUMTOXINA
     Indication: OFF LABEL USE
  7. ONFI [Concomitant]
     Active Substance: CLOBAZAM
     Dates: start: 201904
  8. DIASTAT [Concomitant]
     Active Substance: DIAZEPAM
     Indication: SEIZURE
     Dosage: PRN- ONGOING
     Route: 054
     Dates: start: 201412
  9. ZANTAC [Concomitant]
     Active Substance: RANITIDINE HYDROCHLORIDE
     Indication: GASTROOESOPHAGEAL REFLUX DISEASE
     Dosage: BID
     Dates: start: 201010, end: 201712
  10. DIAMOX SEQUELS [Concomitant]
     Active Substance: ACETAZOLAMIDE
     Indication: SEIZURE
     Dates: start: 201908
  11. ROBINUL [Concomitant]
     Active Substance: GLYCOPYRROLATE
     Indication: DROOLING
     Dosage: ONGOING
     Dates: start: 201908
  12. DYSPORT [Suspect]
     Active Substance: ABOBOTULINUMTOXINA
     Indication: MUSCLE SPASTICITY
     Dosage: 600 IU
     Route: 030
     Dates: start: 20171216
  13. KEPPRA [Concomitant]
     Active Substance: LEVETIRACETAM
     Indication: SEIZURE
     Dosage: ROUTE-G TUBE; BID; ONGOING
     Dates: start: 201412

REACTIONS (7)
  - Overdose [Unknown]
  - Gastroenteritis viral [Recovered/Resolved]
  - Off label use [Unknown]
  - Ear infection [Recovered/Resolved]
  - Ear infection [Recovered/Resolved]
  - Behaviour disorder [Not Recovered/Not Resolved]
  - Pyrexia [Recovered/Resolved]

NARRATIVE: CASE EVENT DATE: 20171216
